FAERS Safety Report 24971747 (Version 4)
Quarter: 2025Q2

REPORT INFORMATION
  Report Type: Report from Study
  Country: JP (occurrence: JP)
  Receive Date: 20250214
  Receipt Date: 20250410
  Transmission Date: 20250717
  Serious: No
  Sender: PFIZER
  Company Number: JP-PFIZER INC-PV202500015274

PATIENT
  Age: 78 Year
  Sex: Female
  Weight: 60.8 kg

DRUGS (17)
  1. ELRANATAMAB [Suspect]
     Active Substance: ELRANATAMAB
     Indication: Plasma cell myeloma
     Route: 058
     Dates: start: 20250124, end: 20250124
  2. ELRANATAMAB [Suspect]
     Active Substance: ELRANATAMAB
     Route: 058
     Dates: start: 20250127, end: 20250127
  3. ELRANATAMAB [Suspect]
     Active Substance: ELRANATAMAB
     Route: 058
     Dates: start: 20250131, end: 20250131
  4. ELRANATAMAB [Suspect]
     Active Substance: ELRANATAMAB
     Route: 058
  5. ELRANATAMAB [Suspect]
     Active Substance: ELRANATAMAB
     Route: 058
  6. ELRANATAMAB [Suspect]
     Active Substance: ELRANATAMAB
     Route: 058
  7. ELRANATAMAB [Suspect]
     Active Substance: ELRANATAMAB
     Route: 058
  8. ELRANATAMAB [Suspect]
     Active Substance: ELRANATAMAB
     Route: 058
     Dates: start: 20250307
  9. LEVOFLOXACIN [Concomitant]
     Active Substance: LEVOFLOXACIN
     Indication: Infection prophylaxis
     Dosage: 250 MG, 1X/DAY
  10. SULFAMETHOXAZOLE\TRIMETHOPRIM [Concomitant]
     Active Substance: SULFAMETHOXAZOLE\TRIMETHOPRIM
     Indication: Infection prophylaxis
     Dosage: 0.5 DF, 1X/DAY
  11. LANSOPRAZOLE [Concomitant]
     Active Substance: LANSOPRAZOLE
     Indication: Prophylaxis against gastrointestinal ulcer
     Dosage: 15 MG, 1X/DAY
  12. CANDESARTAN [Concomitant]
     Active Substance: CANDESARTAN
     Indication: Hypertension
     Dosage: 4 MG, 1X/DAY
  13. CILNIDIPINE [Concomitant]
     Active Substance: CILNIDIPINE
     Indication: Hypertension
     Dosage: 5 MG, 2X/DAY
  14. PRAVASTATIN [Concomitant]
     Active Substance: PRAVASTATIN
     Indication: Dyslipidaemia
     Dosage: 5 MG, 1X/DAY
  15. CLOTIAZEPAM [Concomitant]
     Active Substance: CLOTIAZEPAM
     Indication: Anxiety
     Dosage: 5 MG, 3X/DAY
  16. ACYCLOVIR [Concomitant]
     Active Substance: ACYCLOVIR
     Indication: Infection prophylaxis
     Dosage: 200 MG, 1X/DAY
  17. ACETAMINOPHEN [Concomitant]
     Active Substance: ACETAMINOPHEN
     Indication: Analgesic therapy
     Dosage: 400 MG, 3X/DAY

REACTIONS (3)
  - Tumour flare [Recovered/Resolved]
  - Cytokine release syndrome [Recovered/Resolved]
  - Skin exfoliation [Recovered/Resolved]

NARRATIVE: CASE EVENT DATE: 20250125
